FAERS Safety Report 7811011-8 (Version None)
Quarter: 2011Q4

REPORT INFORMATION
  Report Type: 
  Country: None (occurrence: None)
  Receive Date: 20111013
  Receipt Date: 20111005
  Transmission Date: 20120403
  Serious: Yes (Hospitalization, Other)
  Sender: FDA-Public Use
  Company Number: JP-CELGENEUS-087-21880-10111556

PATIENT
  Sex: Female
  Weight: 39 kg

DRUGS (24)
  1. BUFFERIN [Concomitant]
     Indication: ANGINA PECTORIS
     Dosage: 81 MILLIGRAM
     Route: 048
     Dates: start: 20100910, end: 20110228
  2. SIGMART [Concomitant]
     Indication: ANGINA PECTORIS
     Dosage: 10 MILLIGRAM
     Route: 048
     Dates: start: 20100910
  3. LENADEX [Suspect]
     Indication: MULTIPLE MYELOMA
     Dosage: 40 MILLIGRAM
     Route: 048
     Dates: start: 20100926, end: 20100929
  4. LENADEX [Suspect]
     Dosage: 20 MILLIGRAM
     Route: 048
     Dates: start: 20101117, end: 20101229
  5. DEXAMETHASONE SODIUM PHOSPHATE [Concomitant]
     Indication: MULTIPLE MYELOMA
     Dosage: 33 MILLIGRAM
     Route: 041
     Dates: start: 20100910, end: 20100921
  6. WARFARIN SODIUM [Concomitant]
     Dosage: 2 MILLIGRAM
     Route: 048
     Dates: start: 20100921, end: 20101004
  7. REVLIMID [Suspect]
     Dosage: 15 MILLIGRAM
     Route: 048
     Dates: start: 20101020, end: 20101030
  8. LENADEX [Suspect]
     Dosage: 20 MILLIGRAM
     Route: 048
     Dates: start: 20110115, end: 20110402
  9. NESPO [Concomitant]
     Dosage: 30 MICROGRAM
     Route: 058
     Dates: start: 20110128, end: 20110408
  10. WARFARIN SODIUM [Concomitant]
     Indication: PROPHYLAXIS
     Dosage: 2 MILLIGRAM
     Route: 048
     Dates: start: 20100913, end: 20100916
  11. CARVEDILOL [Concomitant]
     Indication: ANGINA PECTORIS
     Dosage: 5 MILLIGRAM
     Route: 048
     Dates: start: 20100910
  12. ASPIRIN [Concomitant]
     Indication: ANGINA PECTORIS
     Dosage: 100 MILLIGRAM
     Route: 048
     Dates: start: 20110115
  13. REVLIMID [Suspect]
     Dosage: 10 MILLIGRAM
     Route: 048
     Dates: start: 20101117, end: 20110104
  14. REVLIMID [Suspect]
     Dosage: 10 MILLIGRAM
     Route: 048
     Dates: start: 20110115, end: 20110324
  15. LANSOPRAZOLE [Concomitant]
     Indication: PROPHYLAXIS
     Dosage: 15 MILLIGRAM
     Route: 048
     Dates: start: 20100910, end: 20101003
  16. ALOSENN [Concomitant]
     Indication: CONSTIPATION
     Dosage: .5 GRAM
     Route: 048
     Dates: start: 20100910
  17. WARFARIN SODIUM [Concomitant]
     Dosage: 2.5 MILLIGRAM
     Route: 048
     Dates: start: 20100917, end: 20100920
  18. REVLIMID [Suspect]
     Indication: MULTIPLE MYELOMA
     Dosage: 15 MILLIGRAM
     Route: 048
     Dates: start: 20100910, end: 20100930
  19. SULFAMETHOXAZOLE [Concomitant]
     Indication: PROPHYLAXIS
     Dosage: .2 GRAM
     Route: 048
     Dates: start: 20100910
  20. CONIEL [Concomitant]
     Indication: HYPERTENSION
     Dosage: 4 MILLIGRAM
     Route: 048
     Dates: start: 20100910, end: 20101019
  21. CONIEL [Concomitant]
     Dosage: 8 MILLIGRAM
     Route: 048
     Dates: start: 20110115
  22. LENADEX [Suspect]
     Dosage: 40 MILLIGRAM
     Route: 048
     Dates: start: 20101020, end: 20101023
  23. LANSOPRAZOLE [Concomitant]
     Dosage: 30 MILLIGRAM
     Route: 048
     Dates: start: 20101020
  24. HEPARIN SODIUM [Concomitant]
     Indication: PROPHYLAXIS
     Dosage: 10000 UNIT
     Route: 041
     Dates: start: 20100910, end: 20100916

REACTIONS (8)
  - COUGH [None]
  - THROMBOCYTOPENIA [None]
  - NEUTROPENIA [None]
  - UPPER GASTROINTESTINAL HAEMORRHAGE [None]
  - PNEUMONIA [None]
  - UPPER RESPIRATORY TRACT INFLAMMATION [None]
  - PROTHROMBIN TIME PROLONGED [None]
  - PLATELET COUNT DECREASED [None]
